FAERS Safety Report 25240590 (Version 2)
Quarter: 2025Q4

REPORT INFORMATION
  Report Type: Report from Study
  Country: EU (occurrence: EU)
  Receive Date: 20250425
  Receipt Date: 20251027
  Transmission Date: 20260118
  Serious: Yes (Hospitalization)
  Sender: MYLAN
  Company Number: EU-002147023-NVSC2022DE260634

PATIENT
  Sex: Female

DRUGS (9)
  1. METHOTREXATE [Suspect]
     Active Substance: METHOTREXATE
     Indication: Product used for unknown indication
     Dosage: 5 MILLIGRAM, QW
  2. RITUXIMAB [Suspect]
     Active Substance: RITUXIMAB
     Indication: Product used for unknown indication
     Dosage: 1000 MG
  3. RITUXIMAB [Suspect]
     Active Substance: RITUXIMAB
     Dosage: 1000 MG
  4. RITUXIMAB [Suspect]
     Active Substance: RITUXIMAB
     Dosage: 1000 MG
  5. RITUXIMAB [Suspect]
     Active Substance: RITUXIMAB
     Dosage: 500 UNK
  6. RITUXIMAB [Suspect]
     Active Substance: RITUXIMAB
     Dosage: 1000 MILLIGRAM
  7. ERELZI [Suspect]
     Active Substance: ETANERCEPT-SZZS
     Indication: Product used for unknown indication
     Dosage: 500 MILLIGRAM
  8. ETANERCEPT [Suspect]
     Active Substance: ETANERCEPT
     Dosage: 50 MILLIGRAM
  9. RINVOQ [Suspect]
     Active Substance: UPADACITINIB
     Indication: Product used for unknown indication
     Dosage: 15 MILLIGRAM

REACTIONS (23)
  - Spinal pain [Recovered/Resolved]
  - Insomnia [Not Recovered/Not Resolved]
  - Synovial rupture [Unknown]
  - Diagnostic procedure [Recovered/Resolved]
  - Fall [Not Recovered/Not Resolved]
  - Osteopenia [Unknown]
  - Presbyacusis [Unknown]
  - Hepatic steatosis [Unknown]
  - Tenosynovitis [Unknown]
  - Irritable bowel syndrome [Unknown]
  - Chronic gastritis [Unknown]
  - Helicobacter test positive [Unknown]
  - Sinus tachycardia [Unknown]
  - Hypercholesterolaemia [Unknown]
  - Nasopharyngitis [Recovered/Resolved]
  - Peripheral vein thrombosis [Unknown]
  - Nausea [Unknown]
  - Anaemia [Unknown]
  - Bronchitis [Recovered/Resolved]
  - COVID-19 [Recovered/Resolved]
  - Lichen sclerosus [Unknown]
  - Respiratory tract infection [Recovered/Resolved]
  - Diarrhoea [Not Recovered/Not Resolved]

NARRATIVE: CASE EVENT DATE: 20220801
